FAERS Safety Report 14233631 (Version 3)
Quarter: 2018Q2

REPORT INFORMATION
  Report Type: Spontaneous
  Country: JP (occurrence: JP)
  Receive Date: 20171129
  Receipt Date: 20180525
  Transmission Date: 20180711
  Serious: Yes (Death, Life-Threatening, Hospitalization, Congenital Anomaly, Other)
  Sender: FDA-Public Use
  Company Number: JP-009507513-1711JPN000641J

PATIENT
  Age: 63 Year
  Sex: Male
  Weight: 52 kg

DRUGS (4)
  1. RINDERON V [Concomitant]
     Active Substance: BETAMETHASONE VALERATE
     Dosage: 4 MG, QD
     Route: 051
     Dates: start: 20171105, end: 20171110
  2. RINDERON V [Concomitant]
     Active Substance: BETAMETHASONE VALERATE
     Indication: PALLIATIVE CARE
     Dosage: 2 MG, QD
     Route: 051
     Dates: start: 20171104
  3. ACELIO [Concomitant]
     Active Substance: ACETAMINOPHEN
     Indication: PALLIATIVE CARE
     Dosage: 500 MG, PRN
     Route: 051
     Dates: start: 20171103, end: 20171113
  4. KEYTRUDA [Suspect]
     Active Substance: PEMBROLIZUMAB
     Indication: LUNG ADENOCARCINOMA
     Dosage: 200 MG, Q3W
     Route: 041
     Dates: start: 20171102, end: 20171102

REACTIONS (16)
  - Acute respiratory distress syndrome [Unknown]
  - Septic shock [Recovered/Resolved]
  - Procalcitonin increased [Unknown]
  - Disseminated intravascular coagulation [Unknown]
  - Hepatic function abnormal [Recovering/Resolving]
  - Depressed level of consciousness [Not Recovered/Not Resolved]
  - General physical health deterioration [Recovering/Resolving]
  - Malignant neoplasm progression [Fatal]
  - Blood creatinine decreased [Unknown]
  - Memory impairment [Unknown]
  - Organ failure [Unknown]
  - Acute kidney injury [Recovered/Resolved]
  - Blood bilirubin increased [Not Recovered/Not Resolved]
  - Pneumonia aspiration [Fatal]
  - Infection [Unknown]
  - Delirium [Unknown]

NARRATIVE: CASE EVENT DATE: 2017
